FAERS Safety Report 10044873 (Version 2)
Quarter: 2014Q1

REPORT INFORMATION
  Report Type: Spontaneous
  Country: US (occurrence: US)
  Receive Date: 20140328
  Receipt Date: 20140328
  Transmission Date: 20141002
  Serious: Yes (Hospitalization)
  Sender: FDA-Public Use
  Company Number: US-GLAXOSMITHKLINE-A0870502A

PATIENT
  Age: 61 Year
  Sex: Male
  Weight: 120 kg

DRUGS (8)
  1. AVANDAMET [Suspect]
     Indication: DIABETES MELLITUS
     Route: 048
     Dates: start: 2006, end: 2007
  2. ALTACE [Concomitant]
  3. TRICOR [Concomitant]
  4. NIASPAN ER [Concomitant]
  5. LIPITOR [Concomitant]
  6. DOXAZOSIN [Concomitant]
  7. FLOMAX [Concomitant]
  8. OXAPROZIN [Concomitant]

REACTIONS (1)
  - Myocardial infarction [Not Recovered/Not Resolved]
